FAERS Safety Report 7352779-7 (Version None)
Quarter: 2011Q1

REPORT INFORMATION
  Report Type: 
  Country: None (occurrence: None)
  Receive Date: 20110315
  Receipt Date: 20091021
  Transmission Date: 20110831
  Serious: Yes (Hospitalization, Other)
  Sender: FDA-Public Use
  Company Number: PHHY2009DE59543

PATIENT
  Sex: Female
  Weight: 53 kg

DRUGS (2)
  1. EXTAVIA [Suspect]
     Indication: MULTIPLE SCLEROSIS
     Dosage: 1 ML, QOD
     Route: 058
     Dates: start: 20090402
  2. PREDNISOLONE [Concomitant]
     Indication: MULTIPLE SCLEROSIS
     Dosage: 20MG/DAY
     Route: 048
     Dates: start: 20091218

REACTIONS (4)
  - OEDEMA PERIPHERAL [None]
  - VIRAL MYOCARDITIS [None]
  - INJECTION SITE ERYTHEMA [None]
  - VIRAL UPPER RESPIRATORY TRACT INFECTION [None]
